FAERS Safety Report 16846691 (Version 1)
Quarter: 2019Q3

REPORT INFORMATION
  Report Type: Spontaneous
  Country: DE (occurrence: DE)
  Receive Date: 20190924
  Receipt Date: 20190924
  Transmission Date: 20191005
  Serious: Yes (Other)
  Sender: FDA-Public Use
  Company Number: PHHY2019DE221105

PATIENT
  Sex: Male
  Weight: 54 kg

DRUGS (5)
  1. DOCETAXEL. [Concomitant]
     Active Substance: DOCETAXEL
     Indication: ADENOCARCINOMA GASTRIC
     Dosage: 80 MG, UNK (LAST ADMINISTRATION BEFORE ONSET: 19-AUG-2019)
     Route: 042
     Dates: end: 20190819
  2. EMEND [Concomitant]
     Active Substance: APREPITANT
     Indication: PROPHYLAXIS
     Dosage: 125 MG, UNK (LAST ADMINISTRATION BEFORE ONSET: 19-AUG-2019)
     Route: 065
     Dates: end: 20190819
  3. DEXAMETHASONE. [Concomitant]
     Active Substance: DEXAMETHASONE
     Indication: PREMEDICATION
     Dosage: 8 MG, UNK (LAST ADMINISTRATION BEFORE ONSET: 19-AUG-2019)
     Route: 042
     Dates: end: 20190819
  4. OXALIPLATIN. [Suspect]
     Active Substance: OXALIPLATIN
     Indication: ADENOCARCINOMA GASTRIC
     Dosage: 135 MG, UNK (LAST ADMINISTRATION BEFORE ONSET: 19-AUG-2019)
     Route: 042
     Dates: end: 20190819
  5. GRANISETRON [Concomitant]
     Active Substance: GRANISETRON
     Indication: PROPHYLAXIS
     Dosage: 3 MG, UNK (LAST ADMINISTRATION BEFORE ONSET: 19-AUG-2019)
     Route: 042
     Dates: end: 20190819

REACTIONS (1)
  - Chills [Recovered/Resolved]

NARRATIVE: CASE EVENT DATE: 20190819
